FAERS Safety Report 15144671 (Version 2)
Quarter: 2018Q3

REPORT INFORMATION
  Report Type: Spontaneous
  Country: IL (occurrence: IL)
  Receive Date: 20180713
  Receipt Date: 20180815
  Transmission Date: 20181010
  Serious: Yes (Hospitalization, Other)
  Sender: FDA-Public Use
  Company Number: IL-009507513-1807ISR004184

PATIENT
  Age: 55 Year
  Sex: Male
  Weight: 80 kg

DRUGS (3)
  1. SAMARIUM SM 153 LEXIDRONAM PENTASODIUM [Concomitant]
     Dosage: UNK
     Dates: end: 20180306
  2. KEYTRUDA [Suspect]
     Active Substance: PEMBROLIZUMAB
     Indication: SMALL INTESTINE CARCINOMA
     Dosage: UNK UNK, Q3W
     Dates: start: 20180327
  3. KEYTRUDA [Suspect]
     Active Substance: PEMBROLIZUMAB
     Indication: MICROSATELLITE INSTABILITY CANCER
     Dosage: 200 MG, Q3W
     Route: 042
     Dates: start: 20160324, end: 20180306

REACTIONS (7)
  - Intestinal obstruction [Recovered/Resolved]
  - Malignant neoplasm progression [Unknown]
  - Blood pressure increased [Unknown]
  - Respiratory alkalosis [Unknown]
  - Small intestinal obstruction [Recovered/Resolved]
  - Haemolysis [Unknown]
  - Leukocytosis [Unknown]

NARRATIVE: CASE EVENT DATE: 2018
